FAERS Safety Report 4765369-7 (Version None)
Quarter: 2005Q3

REPORT INFORMATION
  Report Type: 
  Country: None (occurrence: None)
  Receive Date: 20050910
  Receipt Date: 20050826
  Transmission Date: 20060218
  Serious: Yes (Hospitalization, Disabling)
  Sender: FDA-Public Use
  Company Number: DK-BOEHRINGER INGELHEIM PHARMACEUTICALS, INC.-2005-SW-00367DB

PATIENT
  Sex: Male

DRUGS (5)
  1. SPIRIVA INH POWDER 18 MCG [Suspect]
     Indication: ASTHMA
     Route: 055
     Dates: start: 20030407, end: 20050603
  2. SERETIDE [Concomitant]
     Dosage: 200 MG SALMETEROL/2000 MG FLUTICASONE
     Route: 055
     Dates: start: 20031002
  3. BRICANYL [Concomitant]
  4. OMNIC [Concomitant]
  5. AMLODIPINE [Concomitant]

REACTIONS (6)
  - DIZZINESS [None]
  - EAR PAIN [None]
  - FATIGUE [None]
  - HEADACHE [None]
  - PNEUMONIA [None]
  - URINARY RETENTION [None]
